FAERS Safety Report 9708343 (Version 2)
Quarter: 2014Q3

REPORT INFORMATION
  Report Type: Spontaneous
  Country: US (occurrence: None)
  Receive Date: 20131121
  Receipt Date: 20140722
  Transmission Date: 20150326
  Serious: Yes (Disabling)
  Sender: FDA-Public Use
  Company Number: 2017184

PATIENT
  Age: 43 Year
  Sex: Male
  Weight: 111.37 kg

DRUGS (1)
  1. DEXTROSE. [Suspect]
     Active Substance: DEXTROSE
     Dosage: NOT APPLICABLE, NOT APPLICABLE, NOT APPLICABLE (UNKNOWN)?
     Dates: start: 20131106

REACTIONS (7)
  - Syringe issue [None]
  - Device difficult to use [None]
  - Foreign body in eye [None]
  - Accidental exposure to product [None]
  - Device malfunction [None]
  - Corneal abrasion [None]
  - Wrong technique in drug usage process [None]

NARRATIVE: CASE EVENT DATE: 20131106
